FAERS Safety Report 9993543 (Version 3)
Quarter: 2014Q2

REPORT INFORMATION
  Report Type: Spontaneous
  Country: GB (occurrence: GB)
  Receive Date: 20140310
  Receipt Date: 20140418
  Transmission Date: 20141212
  Serious: Yes (Hospitalization, Other)
  Sender: FDA-Public Use
  Company Number: PHFR2014GB000930

PATIENT
  Age: 41 Year
  Sex: Male

DRUGS (3)
  1. CLOZARIL [Suspect]
     Dosage: UNK
     Route: 048
     Dates: start: 20131211, end: 20140101
  2. SODIUM VALPROATE [Concomitant]
     Dosage: 2250 MG, UNK
     Route: 048
  3. OLANZAPINE [Concomitant]
     Dosage: 20 MG, UNK
     Route: 048

REACTIONS (6)
  - Respiratory disorder [Recovered/Resolved]
  - Oxygen saturation abnormal [Unknown]
  - Nephrotic syndrome [Recovered/Resolved]
  - Pneumonia [Recovered/Resolved]
  - Pyrexia [Recovered/Resolved]
  - Neuroleptic malignant syndrome [Recovering/Resolving]
